FAERS Safety Report 8862076 (Version 2)
Quarter: 2012Q4

REPORT INFORMATION
  Report Type: Report from Study
  Country: US (occurrence: US)
  Receive Date: 20121026
  Receipt Date: 20121127
  Transmission Date: 20130627
  Serious: No
  Sender: FDA-Public Use
  Company Number: US-JNJFOC-20121012911

PATIENT
  Age: 55 Year
  Sex: Female
  Weight: 61.6 kg

DRUGS (11)
  1. CISAPRIDE [Suspect]
     Indication: IMPAIRED GASTRIC EMPTYING
     Route: 048
     Dates: end: 20010530
  2. CISAPRIDE [Suspect]
     Indication: IMPAIRED GASTRIC EMPTYING
     Route: 048
     Dates: end: 20121017
  3. CISAPRIDE [Suspect]
     Indication: GASTROOESOPHAGEAL REFLUX DISEASE
     Route: 048
     Dates: end: 20010530
  4. CISAPRIDE [Suspect]
     Indication: GASTROOESOPHAGEAL REFLUX DISEASE
     Route: 048
     Dates: end: 20121017
  5. FLOVENT [Concomitant]
     Indication: ASTHMA
     Dosage: 2 puffs
     Route: 055
  6. MULTIPLE-VITAMIN [Concomitant]
     Indication: ROUTINE HEALTH MAINTENANCE
     Route: 048
  7. VIBRAMYCIN [Concomitant]
     Indication: SINUSITIS
     Route: 048
  8. ENTEX LA [Concomitant]
     Indication: SINUSITIS
     Route: 048
  9. FLONASE [Concomitant]
     Indication: RHINITIS
     Dosage: 2 puffs in each nostril
     Route: 045
  10. PROTONIX [Concomitant]
     Indication: GASTROOESOPHAGEAL REFLUX DISEASE
     Dosage: 2 puffs
     Route: 065
     Dates: start: 20010604
  11. TIGAN [Concomitant]
     Indication: NAUSEA
     Route: 054

REACTIONS (1)
  - Electrocardiogram QT prolonged [Unknown]
